FAERS Safety Report 13646067 (Version 1)
Quarter: 2017Q2

REPORT INFORMATION
  Report Type: Spontaneous
  Country: US (occurrence: US)
  Receive Date: 20170612
  Receipt Date: 20170612
  Transmission Date: 20170830
  Serious: Yes (Hospitalization)
  Sender: FDA-Public Use
  Company Number: None

PATIENT
  Age: 66 Year
  Sex: Male
  Weight: 97.98 kg

DRUGS (1)
  1. SIMVASTATIN. [Suspect]
     Active Substance: SIMVASTATIN
     Indication: HYPERLIPIDAEMIA
     Route: 048
     Dates: start: 20051014, end: 20170403

REACTIONS (10)
  - Gait disturbance [None]
  - Acute kidney injury [None]
  - Decreased appetite [None]
  - Rhabdomyolysis [None]
  - Dehydration [None]
  - Confusional state [None]
  - Cough [None]
  - Acute myocardial infarction [None]
  - Dizziness [None]
  - Hypotension [None]

NARRATIVE: CASE EVENT DATE: 20170403
